FAERS Safety Report 10151749 (Version 3)
Quarter: 2014Q2

REPORT INFORMATION
  Report Type: Spontaneous
  Country: US (occurrence: US)
  Receive Date: 20140505
  Receipt Date: 20140613
  Transmission Date: 20141212
  Serious: Yes (Other)
  Sender: FDA-Public Use
  Company Number: US-BIOGENIDEC-2014BI041681

PATIENT
  Age: 38 Year
  Sex: Female

DRUGS (2)
  1. TYSABRI [Suspect]
     Indication: MULTIPLE SCLEROSIS
     Route: 042
     Dates: start: 20090710, end: 20100302
  2. TYSABRI [Suspect]
     Indication: MULTIPLE SCLEROSIS
     Route: 042
     Dates: start: 20100910

REACTIONS (15)
  - Convulsion [Recovered/Resolved]
  - Anxiety [Not Recovered/Not Resolved]
  - Central nervous system lesion [Not Recovered/Not Resolved]
  - Cerebral atrophy [Not Recovered/Not Resolved]
  - Phlebitis [Unknown]
  - Poor venous access [Unknown]
  - Dermatitis contact [Not Recovered/Not Resolved]
  - Memory impairment [Recovered/Resolved]
  - Thermal burn [Unknown]
  - Hallucination [Not Recovered/Not Resolved]
  - Thinking abnormal [Not Recovered/Not Resolved]
  - Aggression [Recovered/Resolved]
  - Visual impairment [Not Recovered/Not Resolved]
  - Claustrophobia [Unknown]
  - Multiple sclerosis relapse [Not Recovered/Not Resolved]
